FAERS Safety Report 6920074-3 (Version None)
Quarter: 2010Q3

REPORT INFORMATION
  Report Type: 
  Country: None (occurrence: None)
  Receive Date: 20100811
  Receipt Date: 20100730
  Transmission Date: 20110219
  Serious: Yes (Other)
  Sender: FDA-Public Use
  Company Number: DE-PFIZER INC-2010095993

PATIENT
  Age: 81 Year
  Sex: Female

DRUGS (6)
  1. LYRICA [Suspect]
     Indication: POLYNEUROPATHY
     Dosage: 25
     Route: 048
     Dates: start: 20080101
  2. LYRICA [Suspect]
     Indication: ANXIETY
  3. LYRICA [Suspect]
     Indication: FEAR
  4. CARVEDILOL [Concomitant]
  5. XIPAMIDE [Concomitant]
  6. LEFAX [Concomitant]

REACTIONS (7)
  - ABDOMINAL PAIN UPPER [None]
  - ARRHYTHMIA [None]
  - ERYTHEMA [None]
  - PAIN [None]
  - PRURITUS [None]
  - SKIN DISCOMFORT [None]
  - SWELLING FACE [None]
